FAERS Safety Report 7243504-9 (Version None)
Quarter: 2011Q1

REPORT INFORMATION
  Report Type: 
  Country: None (occurrence: None)
  Receive Date: 20110125
  Receipt Date: 20110118
  Transmission Date: 20110831
  Serious: Yes (Hospitalization, Other)
  Sender: FDA-Public Use
  Company Number: US-JNJFOC-20110104728

PATIENT
  Age: 30 Year
  Sex: Female
  Weight: 80.74 kg

DRUGS (2)
  1. LEVAQUIN [Suspect]
     Indication: CYSTITIS
     Route: 048
  2. PREVACID [Suspect]
     Indication: OESOPHAGITIS
     Route: 048

REACTIONS (5)
  - DYSPEPSIA [None]
  - BLOOD PRESSURE INCREASED [None]
  - NAUSEA [None]
  - INSOMNIA [None]
  - DEHYDRATION [None]
